FAERS Safety Report 4767971-5 (Version None)
Quarter: 2005Q3

REPORT INFORMATION
  Report Type: 
  Country: None (occurrence: None)
  Receive Date: 20050912
  Receipt Date: 20050831
  Transmission Date: 20060218
  Serious: No
  Sender: FDA-Public Use
  Company Number: 05H-163-0302294-00

PATIENT
  Age: 58 Year
  Sex: Female

DRUGS (1)
  1. PHENYTOIN SODIUM 50MG/ML INJECTION, USP, AMPULE (PHENYTOIN SODIUM) (PH [Suspect]
     Indication: CONVULSION PROPHYLAXIS
     Dosage: 1 GM, ONCE, INTRAVENOUS
     Route: 042
     Dates: start: 20040101, end: 20040101

REACTIONS (3)
  - AMPUTATION [None]
  - GANGRENE [None]
  - VASOSPASM [None]
